FAERS Safety Report 5059155-0 (Version None)
Quarter: 2006Q3

REPORT INFORMATION
  Report Type: 
  Country: None (occurrence: None)
  Receive Date: 20060718
  Receipt Date: 20060705
  Transmission Date: 20061208
  Serious: Yes (Death, Hospitalization, Other)
  Sender: FDA-Public Use
  Company Number: 2005-01826

PATIENT
  Age: 70 Year
  Sex: Male
  Weight: 71.7 kg

DRUGS (14)
  1. VELCADE [Suspect]
     Indication: NON-SMALL CELL LUNG CANCER
     Dosage: 1.00 MG/M2, IV BOLUS
     Route: 040
     Dates: start: 20040229, end: 20040624
  2. GEMCITABINE HYDROCHLORIDE(GEMCITABINE HYDROCHLORIDE) [Suspect]
     Indication: NON-SMALL CELL LUNG CANCER
     Dosage: 1000.00 MG/M2, INTRAVENOUS
     Route: 042
     Dates: start: 20040229, end: 20040608
  3. CARBOPLATIN [Suspect]
     Indication: NON-SMALL CELL LUNG CANCER
  4. FERROUS SULFATE TAB [Concomitant]
  5. ROXICET [Concomitant]
  6. HYDROCHLOROTHIAZIDE [Concomitant]
  7. LIPITOR [Concomitant]
  8. PEPCID AC [Concomitant]
  9. ASPIRIN TAB [Concomitant]
  10. COUMADIN [Concomitant]
  11. ALTACE [Concomitant]
  12. MULTIVITAMINS (ERGOCALCIFEROL, PANTHENOL, NICOTINAMIDE, RIBOFLAVIN, TH [Concomitant]
  13. ACETAZOLAMIDE [Concomitant]
  14. CEPHALEXIN [Concomitant]

REACTIONS (19)
  - ACUTE PULMONARY OEDEMA [None]
  - ALPHA HAEMOLYTIC STREPTOCOCCAL INFECTION [None]
  - ATRIAL FIBRILLATION [None]
  - BLOOD GLUCOSE INCREASED [None]
  - BLOOD PH INCREASED [None]
  - BRAIN NATRIURETIC PEPTIDE INCREASED [None]
  - BRONCHOPNEUMONIA [None]
  - CARDIAC FAILURE [None]
  - CARDIOMEGALY [None]
  - CATHETER RELATED COMPLICATION [None]
  - HAEMOGLOBIN DECREASED [None]
  - INTERNATIONAL NORMALISED RATIO INCREASED [None]
  - LUNG INFILTRATION [None]
  - PNEUMONITIS [None]
  - PULMONARY CONGESTION [None]
  - PULMONARY HAEMORRHAGE [None]
  - RESPIRATORY FAILURE [None]
  - RHONCHI [None]
  - TROPONIN I INCREASED [None]
